FAERS Safety Report 24673482 (Version 1)
Quarter: 2024Q4

REPORT INFORMATION
  Report Type: Report from Study
  Country: US (occurrence: US)
  Receive Date: 20241128
  Receipt Date: 20241128
  Transmission Date: 20250115
  Serious: No
  Sender: ACADIA PHARMACEUTICALS
  Company Number: US-ACADIA PHARMACEUTICALS INC.-ACA-2024-PIM-007407

PATIENT
  Age: 82 Year
  Sex: Male

DRUGS (20)
  1. NUPLAZID [Suspect]
     Active Substance: PIMAVANSERIN TARTRATE
     Indication: Parkinson^s disease psychosis
     Dosage: 34 MILLIGRAM, QD
     Route: 048
     Dates: start: 20241107
  2. NUPLAZID [Suspect]
     Active Substance: PIMAVANSERIN TARTRATE
     Indication: Parkinson^s disease
  3. ATORVASTATIN [Concomitant]
     Active Substance: ATORVASTATIN
  4. CALQUENCE [Concomitant]
     Active Substance: ACALABRUTINIB
  5. ASPIRIN [Concomitant]
     Active Substance: ASPIRIN
  6. ALPRAZOLAM [Concomitant]
     Active Substance: ALPRAZOLAM
  7. LEVOTHYROXINE [Concomitant]
     Active Substance: LEVOTHYROXINE
  8. SERTRALINE [Concomitant]
     Active Substance: SERTRALINE HYDROCHLORIDE
  9. FOMAXIN [Concomitant]
  10. FERROUS SULFATE [Concomitant]
     Active Substance: FERROUS SULFATE
  11. FINASTERIDE [Concomitant]
     Active Substance: FINASTERIDE
  12. PROPRANOLOL [Concomitant]
     Active Substance: PROPRANOLOL HYDROCHLORIDE
  13. VITAMIN B12 [Concomitant]
     Active Substance: CYANOCOBALAMIN
  14. SEROQUEL [Concomitant]
     Active Substance: QUETIAPINE FUMARATE
  15. LOSARTAN [Concomitant]
     Active Substance: LOSARTAN
  16. DONEPEZIL [Concomitant]
     Active Substance: DONEPEZIL
  17. TAMSULOSIN [Concomitant]
     Active Substance: TAMSULOSIN
  18. VITAMIN D3 [Concomitant]
     Active Substance: CHOLECALCIFEROL
  19. ZYRTEC [Concomitant]
     Active Substance: CETIRIZINE HYDROCHLORIDE
  20. ZINC [Concomitant]
     Active Substance: ZINC

REACTIONS (4)
  - Gastroenteritis viral [Unknown]
  - Vomiting [Unknown]
  - Urine odour abnormal [Not Recovered/Not Resolved]
  - Dysuria [Not Recovered/Not Resolved]

NARRATIVE: CASE EVENT DATE: 20241114
